FAERS Safety Report 24728853 (Version 1)
Quarter: 2024Q4

REPORT INFORMATION
  Report Type: Spontaneous
  Country: CN (occurrence: CN)
  Receive Date: 20241212
  Receipt Date: 20241212
  Transmission Date: 20250115
  Serious: Yes (Other)
  Sender: NOVARTIS
  Company Number: CN-002147023-NVSC2024CN233128

PATIENT
  Age: 52 Year
  Sex: Male

DRUGS (1)
  1. SACUBITRIL\VALSARTAN [Suspect]
     Active Substance: SACUBITRIL\VALSARTAN
     Indication: Hypertension
     Dosage: 100 MG, QD
     Route: 048
     Dates: start: 20201111, end: 20241101

REACTIONS (8)
  - Renal impairment [Recovering/Resolving]
  - Blood bilirubin increased [Unknown]
  - Bilirubin conjugated increased [Unknown]
  - Blood bilirubin unconjugated increased [Unknown]
  - AST/ALT ratio abnormal [Unknown]
  - Gamma-glutamyltransferase increased [Unknown]
  - Bile acids increased [Unknown]
  - Off label use [Unknown]

NARRATIVE: CASE EVENT DATE: 20201111
